FAERS Safety Report 5844544-4 (Version None)
Quarter: 2008Q3

REPORT INFORMATION
  Report Type: 
  Country: None (occurrence: None)
  Receive Date: 20080814
  Receipt Date: 20080811
  Transmission Date: 20090109
  Serious: Yes (Hospitalization)
  Sender: FDA-Public Use
  Company Number: PHHO2005CL12766

PATIENT
  Sex: Male

DRUGS (3)
  1. EXELON EXELON+TDP [Suspect]
     Indication: DEMENTIA ALZHEIMER'S TYPE
     Dosage: 5-20 CM2
     Dates: start: 20050322, end: 20050808
  2. QUETIAPINE FUMARATE [Concomitant]
     Indication: AGGRESSION
  3. TRAZODONE HCL [Concomitant]
     Indication: INSOMNIA

REACTIONS (2)
  - NAUSEA [None]
  - VOMITING [None]
